FAERS Safety Report 7387264-X (Version None)
Quarter: 2011Q1

REPORT INFORMATION
  Report Type: 
  Country: None (occurrence: None)
  Receive Date: 20110331
  Receipt Date: 20110324
  Transmission Date: 20110831
  Serious: Yes (Other)
  Sender: FDA-Public Use
  Company Number: FR-PFIZER INC-2011065603

PATIENT
  Age: 51 Year
  Sex: Female

DRUGS (8)
  1. ALDACTONE [Concomitant]
     Dosage: UNK
     Dates: start: 20101001
  2. AROMASIN [Suspect]
     Dosage: 25 MG
     Dates: start: 20110310
  3. ACETAMINOPHEN AND TRAMADOL HCL [Concomitant]
     Dosage: UNK
     Dates: start: 20100901
  4. LASIX [Concomitant]
     Dosage: UNK
     Dates: start: 20101001
  5. XENICAL [Concomitant]
     Dosage: UNK
  6. LEVOTHYROX [Concomitant]
     Indication: HYPOTHYROIDISM
  7. ESBERIVEN [Concomitant]
     Dosage: UNK
  8. TARDYFERON [Concomitant]
     Dosage: UNK
     Dates: end: 20110301

REACTIONS (8)
  - FATIGUE [None]
  - HEADACHE [None]
  - IRON DEFICIENCY [None]
  - WEIGHT INCREASED [None]
  - CONSTIPATION [None]
  - DEPRESSED MOOD [None]
  - HYPERTHYROIDISM [None]
  - ALOPECIA [None]
